FAERS Safety Report 7290845-5 (Version None)
Quarter: 2011Q1

REPORT INFORMATION
  Report Type: 
  Country: None (occurrence: None)
  Receive Date: 20110214
  Receipt Date: 20110209
  Transmission Date: 20110831
  Serious: Yes (Other)
  Sender: FDA-Public Use
  Company Number: CA-ALLERGAN-1101979US

PATIENT
  Age: 55 Year
  Sex: Female

DRUGS (3)
  1. BOTOX COSMETIC [Suspect]
     Indication: SKIN WRINKLING
     Dosage: 51 UNITS, SINGLE
     Route: 030
     Dates: start: 20100701, end: 20100701
  2. BOTOX COSMETIC [Suspect]
     Dosage: 30 UNITS, SINGLE
     Route: 030
     Dates: start: 20101001, end: 20101001
  3. BOTOX COSMETIC [Suspect]
     Dosage: 15 UNITS, SINGLE
     Route: 030
     Dates: start: 20100801, end: 20100801

REACTIONS (2)
  - CARDIAC DISORDER [None]
  - ARRHYTHMIA [None]
